FAERS Safety Report 7334035-6 (Version None)
Quarter: 2011Q1

REPORT INFORMATION
  Report Type: 
  Country: None (occurrence: None)
  Receive Date: 20110302
  Receipt Date: 20110302
  Transmission Date: 20110831
  Serious: No
  Sender: FDA-Public Use
  Company Number: None

PATIENT
  Sex: Female
  Weight: 84.369 kg

DRUGS (2)
  1. AMLODIPIN 10MG [Suspect]
     Indication: HYPERTENSION
     Dosage: 10MG DAILY PO
     Route: 048
     Dates: start: 20100920
  2. METOPROLOL SUCCINATE [Suspect]
     Indication: ATRIAL FIBRILLATION
     Dosage: 100 MG DAILY PO
     Route: 048
     Dates: start: 20100920

REACTIONS (3)
  - NAUSEA [None]
  - PRODUCT SUBSTITUTION ISSUE [None]
  - FATIGUE [None]
